FAERS Safety Report 19493241 (Version 2)
Quarter: 2021Q3

REPORT INFORMATION
  Report Type: Spontaneous
  Country: GB (occurrence: GB)
  Receive Date: 20210705
  Receipt Date: 20210817
  Transmission Date: 20211014
  Serious: Yes (Death)
  Sender: FDA-Public Use
  Company Number: GB-PFIZER INC-2021771980

PATIENT
  Age: 22 Year
  Sex: Male

DRUGS (1)
  1. LUSTRAL [Suspect]
     Active Substance: SERTRALINE HYDROCHLORIDE
     Dosage: UNK
     Dates: start: 20200610

REACTIONS (2)
  - Delirium [Fatal]
  - Completed suicide [Fatal]

NARRATIVE: CASE EVENT DATE: 20200706
